FAERS Safety Report 13721707 (Version 4)
Quarter: 2017Q4

REPORT INFORMATION
  Report Type: Report from Study
  Country: GB (occurrence: GB)
  Receive Date: 20170706
  Receipt Date: 20171106
  Transmission Date: 20180320
  Serious: Yes (Other)
  Sender: FDA-Public Use
  Company Number: GB-BRISTOL-MYERS SQUIBB COMPANY-BMS-2017-039934

PATIENT
  Sex: Female

DRUGS (1)
  1. ABATACEPT [Suspect]
     Active Substance: ABATACEPT
     Indication: RHEUMATOID ARTHRITIS
     Dosage: 125 MG, QWK
     Route: 058
     Dates: start: 201703, end: 201703

REACTIONS (5)
  - Condition aggravated [Unknown]
  - Liver function test increased [Recovering/Resolving]
  - Pain [Unknown]
  - Gallbladder obstruction [Unknown]
  - Hepatic function abnormal [Unknown]
